FAERS Safety Report 14761609 (Version 1)
Quarter: 2018Q2

REPORT INFORMATION
  Report Type: Report from Study
  Country: BR (occurrence: BR)
  Receive Date: 20180416
  Receipt Date: 20180416
  Transmission Date: 20180711
  Serious: Yes (Other)
  Sender: FDA-Public Use
  Company Number: BR-ROCHE-2103408

PATIENT
  Sex: Female
  Weight: 78 kg

DRUGS (4)
  1. PERJETA [Concomitant]
     Active Substance: PERTUZUMAB
     Dosage: NUMBER OF CYCLES: 18. SUBSEQUENT DOSES: 420 MG.
     Route: 065
     Dates: start: 20160520
  2. HERCEPTIN [Suspect]
     Active Substance: TRASTUZUMAB
     Indication: HER-2 POSITIVE BREAST CANCER
     Dosage: NUMBER OF CYCLES: : 54; SUBSEQUENT DOSE 2 MG/KG
     Route: 042
     Dates: start: 20160520, end: 20170601
  3. TAXOL [Concomitant]
     Active Substance: PACLITAXEL
     Route: 065
     Dates: start: 20160520, end: 20170601
  4. PERJETA [Concomitant]
     Active Substance: PERTUZUMAB
     Dosage: NUMBER OF CYCLES: 18. SUBSEQUENT DOSES: 420 MG.
     Route: 065
     Dates: end: 20170601

REACTIONS (1)
  - HER-2 positive breast cancer [Unknown]
